FAERS Safety Report 10182413 (Version 2)
Quarter: 2014Q2

REPORT INFORMATION
  Report Type: Spontaneous
  Country: US (occurrence: US)
  Receive Date: 20140520
  Receipt Date: 20140617
  Transmission Date: 20141212
  Serious: Yes (Hospitalization, Other)
  Sender: FDA-Public Use
  Company Number: US-AMGEN-USASP2014035896

PATIENT
  Age: 71 Year
  Sex: Female
  Weight: 65.31 kg

DRUGS (16)
  1. PROLIA [Suspect]
     Indication: OSTEOPOROSIS POSTMENOPAUSAL
     Dosage: 60 MG, Q6MO
     Route: 058
     Dates: start: 20140116, end: 20140116
  2. ASPIRIN [Concomitant]
     Indication: CORONARY ARTERY DISEASE
     Dosage: 325 MG, QD
     Route: 048
     Dates: start: 20071214
  3. CALCIUM [Concomitant]
     Dosage: UNK UNK, QD
  4. VITAMIN D                          /00107901/ [Concomitant]
     Dosage: UNK UNK, QD
  5. ESTRACE [Concomitant]
     Dosage: 1 MG, QD
  6. KEPPRA [Concomitant]
     Dosage: 500 MG, BID
  7. MINOCYCLINE [Concomitant]
     Dosage: 100 MG, QD
     Route: 048
     Dates: start: 20070830
  8. NITRODUR [Concomitant]
     Indication: CORONARY ARTERY DISEASE
     Dosage: 0.8 MG, AS NECESSARY
     Route: 061
     Dates: start: 20080822
  9. NITROGLYCERIN [Concomitant]
     Indication: CORONARY ARTERY DISEASE
     Dosage: 0.4 MG, AS NECESSARY
     Route: 060
     Dates: start: 20071109
  10. PHENOBARBITAL [Concomitant]
     Indication: CONVULSION
     Dosage: 100 MG, 1/2 TABLET, QD
     Route: 048
     Dates: start: 20070411
  11. PLAVIX [Concomitant]
     Indication: CORONARY ARTERY DISEASE
     Dosage: 75 MG, QD
     Route: 048
     Dates: start: 20071214
  12. SYNTHROID [Concomitant]
     Indication: HYPOTHYROIDISM
     Dosage: 75 MUG, QD
     Route: 048
     Dates: start: 20070822
  13. VITAMIN D3 [Concomitant]
     Dosage: UNK UNK, QD
  14. SIMVASTATIN [Concomitant]
     Indication: HYPERLIPIDAEMIA
     Dosage: 80 MG, QD
     Route: 048
     Dates: start: 20110120
  15. VIVELLE DOT [Concomitant]
     Indication: HORMONE REPLACEMENT THERAPY
     Dosage: UNK UNK, 2 TIMES/WK, PATCH, EVERY 15 HOURS
     Route: 061
     Dates: start: 20070411, end: 20140403
  16. LEVOTHYROXINE [Concomitant]
     Indication: FATIGUE
     Dosage: 50 MUG, QD

REACTIONS (25)
  - Convulsion [Recovered/Resolved]
  - Mental impairment [Unknown]
  - Syncope [Unknown]
  - Somnolence [Unknown]
  - Confusional state [Unknown]
  - Transient global amnesia [Unknown]
  - Dizziness [Unknown]
  - Faecal incontinence [Unknown]
  - Injury [Unknown]
  - Hypocalcaemia [Recovered/Resolved]
  - Blood creatine phosphokinase increased [Unknown]
  - Musculoskeletal pain [Unknown]
  - Joint swelling [Unknown]
  - Contusion [Unknown]
  - Headache [Unknown]
  - Dyspnoea exertional [Unknown]
  - Exercise test abnormal [Unknown]
  - Back injury [Recovering/Resolving]
  - Fatigue [Not Recovered/Not Resolved]
  - Myalgia [Unknown]
  - Muscle spasms [Unknown]
  - Blood thyroid stimulating hormone abnormal [Unknown]
  - Blood urea increased [Unknown]
  - Slow speech [Unknown]
  - Bundle branch block right [Unknown]
